FAERS Safety Report 21394371 (Version 1)
Quarter: 2022Q3

REPORT INFORMATION
  Report Type: Spontaneous
  Country: NL (occurrence: NL)
  Receive Date: 20220930
  Receipt Date: 20220930
  Transmission Date: 20221026
  Serious: Yes (Death, Other)
  Sender: FDA-Public Use
  Company Number: NL-TIOFARMA-TIO0000372

PATIENT
  Sex: Female

DRUGS (3)
  1. COLCHICINE [Suspect]
     Active Substance: COLCHICINE
     Indication: Pain in extremity
     Dosage: UNK
     Route: 065
     Dates: start: 201911, end: 20191205
  2. MOVICOLON [Concomitant]
     Active Substance: POLYETHYLENE GLYCOL 3350\POTASSIUM CHLORIDE\SODIUM BICARBONATE\SODIUM CHLORIDE
     Indication: Constipation
     Dosage: UNK
     Route: 065
  3. POLYETHYLENE GLYCOLS [Concomitant]
     Active Substance: POLYETHYLENE GLYCOLS
     Indication: Constipation
     Dosage: UNK
     Route: 065

REACTIONS (5)
  - Lethargy [Fatal]
  - Diarrhoea [Fatal]
  - Weight decreased [Fatal]
  - Death [Fatal]
  - Decreased appetite [Fatal]

NARRATIVE: CASE EVENT DATE: 20191101
